FAERS Safety Report 22156641 (Version 1)
Quarter: 2023Q1

REPORT INFORMATION
  Report Type: Spontaneous
  Country: US (occurrence: None)
  Receive Date: 20230329
  Receipt Date: 20230329
  Transmission Date: 20230418
  Serious: No
  Sender: FDA-Public Use
  Company Number: None

PATIENT
  Age: 59 Year
  Sex: Female
  Weight: 76.2 kg

DRUGS (11)
  1. LORBRENA [Suspect]
     Active Substance: LORLATINIB
     Indication: Lung carcinoma cell type unspecified stage 0
     Dosage: FREQUENCY : DAILY;?
     Route: 048
  2. ADVAIR [Concomitant]
  3. ELIQUIS [Concomitant]
  4. FLONASE [Concomitant]
  5. LEVOTHYROXINE [Concomitant]
  6. OCEAN BLUE MINI CAPS [Concomitant]
  7. POTASSIUM [Concomitant]
  8. ROSUVASTATIN [Concomitant]
  9. TORSEMIDE [Concomitant]
  10. VITAMIN C [Concomitant]
  11. VITAMIN D [Concomitant]

REACTIONS (2)
  - Dyspnoea [None]
  - Peripheral swelling [None]
